FAERS Safety Report 9896779 (Version 1)
Quarter: 2014Q1

REPORT INFORMATION
  Report Type: Spontaneous
  Country: US (occurrence: US)
  Receive Date: 20140213
  Receipt Date: 20140213
  Transmission Date: 20141002
  Serious: No
  Sender: FDA-Public Use
  Company Number: US-BRISTOL-MYERS SQUIBB COMPANY-19195528

PATIENT
  Sex: Female
  Weight: 43.08 kg

DRUGS (1)
  1. ORENCIA [Suspect]
     Dosage: TOTAL NO.OF INFUSIONS:3.
     Route: 042

REACTIONS (1)
  - Pain in extremity [Recovering/Resolving]
